FAERS Safety Report 21741796 (Version 1)
Quarter: 2022Q4

REPORT INFORMATION
  Report Type: Spontaneous
  Country: US (occurrence: US)
  Receive Date: 20221216
  Receipt Date: 20221216
  Transmission Date: 20230113
  Serious: Yes (Hospitalization)
  Sender: FDA-Public Use
  Company Number: US-R-PHARM US LLC-2022RPM00032

PATIENT
  Sex: Female

DRUGS (2)
  1. IXEMPRA [Suspect]
     Active Substance: IXABEPILONE
     Indication: Endometrial adenocarcinoma
     Dosage: UNK
  2. IXEMPRA [Suspect]
     Active Substance: IXABEPILONE
     Indication: Ovarian cancer
     Dosage: 37 MG, 1X/WEEK
     Route: 042
     Dates: start: 20221117

REACTIONS (8)
  - Hospitalisation [Recovered/Resolved]
  - Malnutrition [Unknown]
  - Laboratory test abnormal [Unknown]
  - Hypokalaemia [Unknown]
  - Abdominal pain [Unknown]
  - Nausea [Recovered/Resolved]
  - Off label use [Unknown]
  - Product dose omission issue [Unknown]

NARRATIVE: CASE EVENT DATE: 20220101
